FAERS Safety Report 22624956 (Version 1)
Quarter: 2023Q2

REPORT INFORMATION
  Report Type: Spontaneous
  Country: US (occurrence: US)
  Receive Date: 20230621
  Receipt Date: 20230621
  Transmission Date: 20230722
  Serious: No
  Sender: FDA-Public Use
  Company Number: US-drreddys-SPO/USA/23/0166071

PATIENT
  Age: 16 Year

DRUGS (3)
  1. ACCUTANE [Suspect]
     Active Substance: ISOTRETINOIN
     Indication: Product used for unknown indication
     Dosage: RMA ISSUE DATE 01 MAY 2023 03:43:04 PM
  2. ACCUTANE [Suspect]
     Active Substance: ISOTRETINOIN
     Dosage: RMA ISSUE DATE 14 JANUARY 2022 08:31:41 AM, 03 MARCH 2022 08:42:14 AM, 01 APRIL 2022 09:25:47 AM, 04
  3. ACCUTANE [Suspect]
     Active Substance: ISOTRETINOIN
     Dosage: RMA ISSUE DATE  03 FEBRUARY 2022 10:07:26 AM

REACTIONS (1)
  - Treatment noncompliance [Unknown]
